FAERS Safety Report 4668499-3 (Version None)
Quarter: 2005Q2

REPORT INFORMATION
  Report Type: 
  Country: None (occurrence: None)
  Receive Date: 20050518
  Receipt Date: 20050429
  Transmission Date: 20051028
  Serious: Yes (Other)
  Sender: FDA-Public Use
  Company Number: B0380204A

PATIENT
  Age: 26 Year
  Sex: Male

DRUGS (1)
  1. EPIVIR [Suspect]
     Indication: HEPATITIS B
     Dosage: 100 MG/PER DAY/ORAL
     Route: 048
     Dates: start: 20040817, end: 20041110

REACTIONS (4)
  - ECCHYMOSIS [None]
  - EPISTAXIS [None]
  - GINGIVAL BLEEDING [None]
  - PLATELET COUNT DECREASED [None]
